FAERS Safety Report 6942137-9 (Version None)
Quarter: 2010Q3

REPORT INFORMATION
  Report Type: 
  Country: None (occurrence: None)
  Receive Date: 20100823
  Receipt Date: 20100809
  Transmission Date: 20110219
  Serious: Yes (Hospitalization)
  Sender: FDA-Public Use
  Company Number: 012816

PATIENT
  Sex: Female
  Weight: 51.4 kg

DRUGS (4)
  1. CIMZIA [Suspect]
     Indication: CROHN'S DISEASE
     Dosage: 400 MG 1X/2 WEEKS SUBCUTANEOUS
     Route: 058
     Dates: start: 20090416
  2. PROTONIX [Concomitant]
  3. CARAFATE [Concomitant]
  4. ULTRACET [Concomitant]

REACTIONS (4)
  - CYTOMEGALOVIRUS INFECTION [None]
  - GASTRIC ULCER [None]
  - ILEITIS [None]
  - PANCREATITIS [None]
